FAERS Safety Report 26075271 (Version 1)
Quarter: 2025Q4

REPORT INFORMATION
  Report Type: Spontaneous
  Country: US (occurrence: US)
  Receive Date: 20251121
  Receipt Date: 20251121
  Transmission Date: 20260117
  Serious: Yes (Hospitalization, Other)
  Sender: NOVO NORDISK
  Company Number: US-NOVOPROD-1564921

PATIENT
  Sex: Female

DRUGS (2)
  1. OZEMPIC [Suspect]
     Active Substance: SEMAGLUTIDE
     Dosage: 0.25 MG WEEKLY (DOSE RESTARTED)
  2. OZEMPIC [Suspect]
     Active Substance: SEMAGLUTIDE
     Indication: Blood glucose increased
     Dosage: 2 MG, QW

REACTIONS (6)
  - Gallbladder disorder [Unknown]
  - Fall [Unknown]
  - Loss of consciousness [Unknown]
  - Sepsis [Unknown]
  - Confusional state [Unknown]
  - Off label use [Unknown]
